FAERS Safety Report 11640449 (Version 5)
Quarter: 2016Q2

REPORT INFORMATION
  Report Type: Spontaneous
  Country: US (occurrence: US)
  Receive Date: 20151019
  Receipt Date: 20160620
  Transmission Date: 20160815
  Serious: Yes (Hospitalization, Other)
  Sender: FDA-Public Use
  Company Number: US-GLAXOSMITHKLINE-US2015GSK147866

PATIENT
  Age: 80 Year
  Sex: Female

DRUGS (1)
  1. ADVAIR HFA [Suspect]
     Active Substance: FLUTICASONE PROPIONATE\SALMETEROL XINAFOATE
     Indication: CHRONIC OBSTRUCTIVE PULMONARY DISEASE
     Dosage: UNK
     Dates: start: 2012

REACTIONS (5)
  - Malaise [Unknown]
  - Bronchitis bacterial [Unknown]
  - Chronic obstructive pulmonary disease [Unknown]
  - Pneumonia [Unknown]
  - Thoracotomy [Unknown]

NARRATIVE: CASE EVENT DATE: 201303
